FAERS Safety Report 7119356-4 (Version None)
Quarter: 2010Q4

REPORT INFORMATION
  Report Type: 
  Country: None (occurrence: None)
  Receive Date: 20101123
  Receipt Date: 20101112
  Transmission Date: 20110411
  Serious: Yes (Other)
  Sender: FDA-Public Use
  Company Number: ES-JNJFOC-20101105805

PATIENT
  Sex: Male
  Weight: 85 kg

DRUGS (1)
  1. CONCERTA [Suspect]
     Indication: PSYCHOMOTOR HYPERACTIVITY
     Route: 048

REACTIONS (3)
  - DRUG ADMINISTRATION ERROR [None]
  - GROWTH RETARDATION [None]
  - INADEQUATE DIET [None]
